FAERS Safety Report 21585886 (Version 1)
Quarter: 2022Q4

REPORT INFORMATION
  Report Type: Spontaneous
  Country: US (occurrence: US)
  Receive Date: 20221111
  Receipt Date: 20221111
  Transmission Date: 20230113
  Serious: No
  Sender: FDA-Public Use
  Company Number: US-JNJFOC-20221103505

PATIENT
  Age: 8 Decade
  Sex: Female

DRUGS (2)
  1. WOMENS ROGAINE UNSCENTED [Suspect]
     Active Substance: MINOXIDIL
     Indication: Alopecia
     Dosage: DOSE: 1/2 CAPFUL TOTAL, ONCE A DAY, TWICE A WEEK, FOR ABOUT 5-6 WEEKS
     Route: 061
     Dates: start: 2022
  2. WOMENS ROGAINE UNSCENTED [Suspect]
     Active Substance: MINOXIDIL
     Dosage: DOSE: 1/2 CAPFUL ONCE A DAY, TWICE A WEEK, FOR ABOUT 5-6 WEEKS
     Route: 061
     Dates: start: 2016

REACTIONS (1)
  - Inappropriate schedule of product administration [Unknown]

NARRATIVE: CASE EVENT DATE: 20160101
